FAERS Safety Report 7169869-4 (Version None)
Quarter: 2010Q4

REPORT INFORMATION
  Report Type: 
  Country: None (occurrence: None)
  Receive Date: 20101217
  Receipt Date: 20101210
  Transmission Date: 20110411
  Serious: Yes (Death)
  Sender: FDA-Public Use
  Company Number: PHHY2010US85364

PATIENT
  Age: 86 Year
  Sex: Female

DRUGS (17)
  1. RECLAST [Suspect]
     Dosage: 5 MG
     Route: 042
     Dates: start: 20101206
  2. ENALAPRIL MALEATE [Concomitant]
     Dosage: 10 MG, 1 TABLET ONCE A DAY
  3. COREG [Concomitant]
     Dosage: 12.5 MG, 1/2 TABLET WITH FOOD BID
  4. LASIX [Concomitant]
     Dosage: 20 MG, 1 TABLET ON 3 TIMES IN WEEK
  5. CALCIUM [Concomitant]
  6. VITAMIN D [Concomitant]
     Dosage: 1000 UNITS/1 TABLET ONCE A DAY
  7. GABAPENTIN [Concomitant]
     Dosage: 600 MG. TID
  8. COLACE [Concomitant]
     Dosage: 100 MG, AS NEEDED BID
  9. COUMADIN [Concomitant]
  10. LEXAPRO [Concomitant]
     Dosage: 10 MG, 1/2 TAB, ONCE A DAY
  11. CHOLESTYRAMINE RESIN [Concomitant]
  12. FENTANYL [Concomitant]
     Dosage: 72 HRS 75 MCG/HR 1 PATCH TO SKIN
  13. OMEPRAZOLE [Concomitant]
     Dosage: 20 MG, ONCE DAY, DELYED RELEASE
  14. ZOLPIDEM TARTRATE [Concomitant]
     Dosage: 5 MG, ONCE A DAY
  15. TIKOSYN [Concomitant]
     Dosage: 125 MCG, BID
  16. OXYCODONE HYDROCHLORIDE [Concomitant]
     Dosage: 5 MG
  17. IRON [Concomitant]
     Dosage: 325 MCG, BID

REACTIONS (2)
  - DEATH [None]
  - MALAISE [None]
